FAERS Safety Report 7207034-2 (Version None)
Quarter: 2011Q1

REPORT INFORMATION
  Report Type: 
  Country: None (occurrence: None)
  Receive Date: 20110103
  Receipt Date: 20101223
  Transmission Date: 20110831
  Serious: Yes (Other)
  Sender: FDA-Public Use
  Company Number: B0687388A

PATIENT
  Sex: Male
  Weight: 84 kg

DRUGS (2)
  1. TAMSULOSIN [Concomitant]
     Indication: BENIGN PROSTATIC HYPERPLASIA
     Dosage: .4MG PER DAY
     Dates: start: 20071002, end: 20090101
  2. DUTASTERIDE [Suspect]
     Dosage: .5MG PER DAY
     Route: 048
     Dates: start: 20071002

REACTIONS (1)
  - FLOPPY IRIS SYNDROME [None]
